FAERS Safety Report 4466056-5 (Version None)
Quarter: 2004Q3

REPORT INFORMATION
  Report Type: 
  Country: None (occurrence: None)
  Receive Date: 20040930
  Receipt Date: 20040907
  Transmission Date: 20050211
  Serious: Yes (Hospitalization)
  Sender: FDA-Public Use
  Company Number: D01200403476

PATIENT
  Age: 61 Year
  Sex: Female

DRUGS (15)
  1. (OXALIPLATIN) - SOLUTION - 85 MG/ M2 [Suspect]
     Dosage: 85 MG/M2 Q2W INTRAVENOUS NOS
     Route: 042
     Dates: start: 20040906, end: 20040906
  2. FLUOROURACIL [Suspect]
     Dosage: 400 MG/M2 AS IV BOLUS THEN 600 MG/M2 AS 22 HOURS CONTINUOUS INFUSION D1-D2 Q2W, INTRAVENOUS NOS
     Route: 042
     Dates: start: 20040906, end: 20040906
  3. SR57746 OR PLACEBO - CAPSULE - 1 MG [Suspect]
     Indication: COLORECTAL CANCER METASTATIC
     Dosage: 1 MG QD ORAL
     Route: 048
     Dates: start: 20031028, end: 20040906
  4. LEUCOVORIN - SOLUTION - 200 MG/M2 [Suspect]
     Dosage: 200 MG/M2 AS 2 HOURS INFUSION ON D1-D2 Q2W INTRAVENOUS NOS
     Route: 042
     Dates: start: 20040906, end: 20040906
  5. DECADRON [Concomitant]
  6. KYTRIL [Concomitant]
  7. VALOID SUPPOSITORIES (CYCLIZINE) [Concomitant]
  8. CALCIUM SANDOZ (CALCIUM GLUBIONATE) [Concomitant]
  9. ACETAMINOPHEN W/ CODEINE [Concomitant]
  10. MAXOLON (METOCLOPRAMIDE HCL) [Concomitant]
  11. IMODIUM (LOPERAMIDE HCL) [Concomitant]
  12. AMOXIL [Concomitant]
  13. FLAGYL [Concomitant]
  14. CIPROFLOXACIN [Concomitant]
  15. FLUCLOX (FLUCLOXACILLIN SODIUM) [Concomitant]

REACTIONS (6)
  - ATRIAL FIBRILLATION [None]
  - HEART RATE INCREASED [None]
  - METASTASES TO HEART [None]
  - MITRAL VALVE INCOMPETENCE [None]
  - OEDEMA PERIPHERAL [None]
  - VENOUS PRESSURE INCREASED [None]
